FAERS Safety Report 5360381-1 (Version None)
Quarter: 2007Q2

REPORT INFORMATION
  Report Type: 
  Country: None (occurrence: None)
  Receive Date: 20070614
  Receipt Date: 20070608
  Transmission Date: 20071010
  Serious: Yes (Other)
  Sender: FDA-Public Use
  Company Number: 2007SP010047

PATIENT
  Age: 46 Year
  Sex: Female
  Weight: 69.8539 kg

DRUGS (3)
  1. PEG-INTRON [Suspect]
     Indication: HEPATITIS C
     Dosage: SC
     Route: 058
     Dates: start: 20070216
  2. REBETOL [Suspect]
     Indication: HEPATITIS C
     Dosage: PO
     Route: 048
     Dates: start: 20070216
  3. NSAIDS [Concomitant]

REACTIONS (5)
  - DUODENAL ULCER HAEMORRHAGE [None]
  - EROSIVE DUODENITIS [None]
  - FATIGUE [None]
  - MYALGIA [None]
  - PANCREATITIS [None]
